FAERS Safety Report 24369156 (Version 2)
Quarter: 2025Q2

REPORT INFORMATION
  Report Type: Report from Study
  Country: US (occurrence: US)
  Receive Date: 20240927
  Receipt Date: 20250520
  Transmission Date: 20250717
  Serious: Yes (Other)
  Sender: ABBVIE
  Company Number: US-ABBVIE-5935537

PATIENT
  Age: 72 Year
  Sex: Female

DRUGS (1)
  1. ARMOUR THYROID [Suspect]
     Active Substance: THYROID, PORCINE
     Indication: Product used for unknown indication
     Dosage: FORM STRENGTH:60 MG
     Route: 048
     Dates: start: 1990

REACTIONS (2)
  - Neoplasm malignant [Unknown]
  - Deafness [Unknown]

NARRATIVE: CASE EVENT DATE: 20200101
